FAERS Safety Report 7232458-7 (Version None)
Quarter: 2011Q1

REPORT INFORMATION
  Report Type: 
  Country: None (occurrence: None)
  Receive Date: 20110119
  Receipt Date: 20110113
  Transmission Date: 20110831
  Serious: No
  Sender: FDA-Public Use
  Company Number: US-PFIZER INC-2011009945

PATIENT
  Sex: Female
  Weight: 90.703 kg

DRUGS (3)
  1. SERTRALINE HYDROCHLORIDE [Suspect]
     Indication: DEPRESSION
     Dosage: 200 MG, 1X/DAY
     Route: 048
  2. CLONAZEPAM [Concomitant]
     Indication: DEPRESSION
  3. CLONAZEPAM [Concomitant]
     Indication: ANXIETY
     Dosage: 1 MG, 4X/DAY
     Route: 048

REACTIONS (1)
  - DRUG INEFFECTIVE [None]
